FAERS Safety Report 21415393 (Version 1)
Quarter: 2022Q4

REPORT INFORMATION
  Report Type: Spontaneous
  Country: US (occurrence: US)
  Receive Date: 20221006
  Receipt Date: 20221006
  Transmission Date: 20230113
  Serious: Yes (Hospitalization, Other)
  Sender: FDA-Public Use
  Company Number: None

PATIENT
  Age: 26 Year
  Sex: Male

DRUGS (5)
  1. FLUPHENAZINE [Suspect]
     Active Substance: FLUPHENAZINE
     Indication: Neuroleptic malignant syndrome
  2. OLANZAPINE [Concomitant]
     Active Substance: OLANZAPINE
     Indication: Neuroleptic malignant syndrome
     Route: 048
  3. ARIPIPRAZOLE [Concomitant]
     Active Substance: ARIPIPRAZOLE
     Indication: Neuroleptic malignant syndrome
     Route: 048
  4. RISPERIDONE [Concomitant]
     Active Substance: RISPERIDONE
     Indication: Neuroleptic malignant syndrome
  5. LITHIUM [Concomitant]
     Active Substance: LITHIUM
     Indication: Neuroleptic malignant syndrome

REACTIONS (1)
  - Rhabdomyolysis [Recovered/Resolved]
